FAERS Safety Report 19447396 (Version 1)
Quarter: 2021Q2

REPORT INFORMATION
  Report Type: Spontaneous
  Country: CA (occurrence: CA)
  Receive Date: 20210621
  Receipt Date: 20210621
  Transmission Date: 20210717
  Serious: Yes (Other)
  Sender: FDA-Public Use
  Company Number: None

PATIENT
  Age: 51 Year
  Sex: Female
  Weight: 62.1 kg

DRUGS (7)
  1. APO?CEFUROXIME [Suspect]
     Active Substance: CEFUROXIME AXETIL
     Indication: ANIMAL BITE
     Route: 048
     Dates: start: 20210619, end: 20210619
  2. ST.JOHN^S WORT [Concomitant]
  3. APO?CEFUROXIME [Suspect]
     Active Substance: CEFUROXIME AXETIL
     Indication: INFECTION
     Route: 048
     Dates: start: 20210619, end: 20210619
  4. PANTAPRAZOLE [Concomitant]
     Active Substance: PANTOPRAZOLE SODIUM
  5. PEPCID AC [Concomitant]
     Active Substance: FAMOTIDINE
  6. ELIDEL [Concomitant]
     Active Substance: PIMECROLIMUS
  7. ACIDOPHILUS [Concomitant]
     Active Substance: LACTOBACILLUS ACIDOPHILUS

REACTIONS (3)
  - Diarrhoea [None]
  - Dizziness [None]
  - Hot flush [None]

NARRATIVE: CASE EVENT DATE: 20210619
